FAERS Safety Report 8984370 (Version 1)
Quarter: 2012Q4

REPORT INFORMATION
  Report Type: Report from Study
  Country: CA (occurrence: CA)
  Receive Date: 20121226
  Receipt Date: 20121226
  Transmission Date: 20130627
  Serious: Yes (Other)
  Sender: FDA-Public Use
  Company Number: CA-JNJFOC-20121208909

PATIENT
  Age: 68 Year
  Sex: Female
  Weight: 62 kg

DRUGS (9)
  1. REMICADE [Suspect]
     Indication: RHEUMATOID ARTHRITIS
     Route: 042
     Dates: start: 20020313
  2. XANAX [Concomitant]
     Route: 065
  3. NORVASC [Concomitant]
     Route: 065
  4. ECASA [Concomitant]
     Route: 065
  5. FOLATE [Concomitant]
     Route: 065
  6. METOPROLOL [Concomitant]
     Dosage: will be changed to Corag (carvedilol) when special authorization received
     Route: 065
  7. CRESTOR [Concomitant]
     Route: 065
  8. VITAMIN B12 [Concomitant]
     Route: 065
  9. LOSEC [Concomitant]
     Route: 065

REACTIONS (1)
  - Renal failure [Not Recovered/Not Resolved]
